FAERS Safety Report 4804221-5 (Version None)
Quarter: 2005Q4

REPORT INFORMATION
  Report Type: 
  Country: None (occurrence: None)
  Receive Date: 20051017
  Receipt Date: 20050908
  Transmission Date: 20060501
  Serious: Yes (Death, Other)
  Sender: FDA-Public Use
  Company Number: 2005RR-00902

PATIENT
  Age: 19 Year
  Sex: Female

DRUGS (4)
  1. PAROXETINE HCL [Suspect]
     Dosage: 30 MG,
     Dates: start: 19991101, end: 20000801
  2. PARACETAMOL TABLETS BP 500MG (IBUPROFEN) [Suspect]
     Dosage: ORAL
     Route: 048
  3. IBUPROFEN [Suspect]
  4. CITALOPRAM TABLET 10MG (CITALOPRAM) [Suspect]
     Indication: DEPRESSED MOOD
     Dosage: 20 MG,

REACTIONS (2)
  - COMPLETED SUICIDE [None]
  - OVERDOSE [None]
